FAERS Safety Report 5737530-6 (Version None)
Quarter: 2008Q2

REPORT INFORMATION
  Report Type: 
  Country: None (occurrence: None)
  Receive Date: 20080513
  Receipt Date: 20080513
  Transmission Date: 20081010
  Serious: Yes (Other)
  Sender: FDA-Public Use
  Company Number: None

PATIENT
  Age: 61 Year
  Sex: Male
  Weight: 95.2554 kg

DRUGS (1)
  1. CREST PRO-HEALTH MOUTH WASH P + G [Suspect]
     Indication: DENTAL DISORDER PROPHYLAXIS
     Dosage: MOUTHFUL DAILY PO
     Route: 048
     Dates: start: 20080201, end: 20080501

REACTIONS (2)
  - PHARMACEUTICAL PRODUCT COMPLAINT [None]
  - TOOTH DISCOLOURATION [None]
